FAERS Safety Report 20787903 (Version 1)
Quarter: 2022Q2

REPORT INFORMATION
  Report Type: Spontaneous
  Country: US (occurrence: US)
  Receive Date: 20220505
  Receipt Date: 20220505
  Transmission Date: 20220721
  Serious: No
  Sender: FDA-Public Use
  Company Number: US-SA-SAC20220503000924

PATIENT
  Age: 47 Year
  Sex: Male

DRUGS (28)
  1. FABRAZYME [Suspect]
     Active Substance: AGALSIDASE BETA
     Indication: Fabry^s disease
     Dosage: 85 MG, QW
     Route: 042
     Dates: start: 20080212
  2. SODIUM CHLORIDE [Concomitant]
     Active Substance: SODIUM CHLORIDE
  3. STERILE WATER [Concomitant]
     Active Substance: WATER
  4. EPINEPHRINE [Concomitant]
     Active Substance: EPINEPHRINE
  5. VITAMIN D3 [Concomitant]
     Active Substance: CHOLECALCIFEROL
  6. LIVALO [Concomitant]
     Active Substance: PITAVASTATIN CALCIUM
  7. NEURONTIN [Concomitant]
     Active Substance: GABAPENTIN
  8. COZAAR [Concomitant]
     Active Substance: LOSARTAN POTASSIUM
  9. PREDNISONE [Concomitant]
     Active Substance: PREDNISONE
  10. NORVASC [Concomitant]
     Active Substance: AMLODIPINE BESYLATE
  11. MYFORTIC [Concomitant]
     Active Substance: MYCOPHENOLATE SODIUM
  12. TEGRETOL [Concomitant]
     Active Substance: CARBAMAZEPINE
  13. ADVAIR HFA [Concomitant]
     Active Substance: FLUTICASONE PROPIONATE\SALMETEROL XINAFOATE
  14. AVODART [Concomitant]
     Active Substance: DUTASTERIDE
  15. NEXIUM [Concomitant]
     Active Substance: ESOMEPRAZOLE MAGNESIUM
  16. ATIVAN [Concomitant]
     Active Substance: LORAZEPAM
  17. ASPIRIN [Concomitant]
     Active Substance: ASPIRIN
  18. FLOMAX [Concomitant]
     Active Substance: TAMSULOSIN HYDROCHLORIDE
  19. LOPRESSOR [Concomitant]
     Active Substance: METOPROLOL TARTRATE
  20. TORSEMIDE [Concomitant]
     Active Substance: TORSEMIDE
  21. DURAGESIC [Concomitant]
     Active Substance: FENTANYL
  22. XYZAL [Concomitant]
     Active Substance: LEVOCETIRIZINE DIHYDROCHLORIDE
  23. CARAFATE [Concomitant]
     Active Substance: SUCRALFATE
  24. PROAIR HFA [Concomitant]
     Active Substance: ALBUTEROL SULFATE
  25. ACETAMINOPHEN\OXYCODONE HYDROCHLORIDE\OXYCODONE TEREPHTHALATE [Concomitant]
     Active Substance: ACETAMINOPHEN\OXYCODONE HYDROCHLORIDE\OXYCODONE TEREPHTHALATE
  26. COLACE [Concomitant]
     Active Substance: DOCUSATE SODIUM
  27. PROGRAF [Concomitant]
     Active Substance: TACROLIMUS
  28. SODIUM CHLORIDE [Concomitant]
     Active Substance: SODIUM CHLORIDE

REACTIONS (2)
  - COVID-19 [Unknown]
  - Product use issue [Unknown]

NARRATIVE: CASE EVENT DATE: 20080212
